FAERS Safety Report 6755015-5 (Version None)
Quarter: 2010Q2

REPORT INFORMATION
  Report Type: 
  Country: None (occurrence: None)
  Receive Date: 20100602
  Receipt Date: 20100526
  Transmission Date: 20101027
  Serious: Yes (Death)
  Sender: FDA-Public Use
  Company Number: 2010US001814

PATIENT
  Age: 67 Year
  Sex: Male

DRUGS (1)
  1. PROGRAF [Suspect]
     Indication: ORGAN TRANSPLANT
     Dosage: 7 MG, BID, ORAL
     Route: 048

REACTIONS (2)
  - INFLUENZA [None]
  - PNEUMONIA [None]
